FAERS Safety Report 8782956 (Version 2)
Quarter: 2013Q2

REPORT INFORMATION
  Report Type: Report from Study
  Country: DE (occurrence: DE)
  Receive Date: 20120913
  Receipt Date: 20130422
  Transmission Date: 20140414
  Serious: Yes (Life-Threatening, Hospitalization)
  Sender: FDA-Public Use
  Company Number: DE-VERTEX PHARMACEUTICAL INC.-2012-021044

PATIENT
  Age: 37 Year
  Sex: Male
  Weight: 79 kg

DRUGS (4)
  1. VX-950 (TELAPREVIR) [Suspect]
     Indication: HEPATITIS C
     Dosage: 2250 MG, QD
     Route: 048
     Dates: start: 20120302, end: 20120525
  2. COPEGUS [Concomitant]
     Indication: HEPATITIS C
     Dosage: 600 MG, QD
     Route: 048
     Dates: start: 20120720
  3. COPEGUS [Concomitant]
     Dosage: 800 MG, QD
     Route: 048
     Dates: start: 20120622, end: 20120719
  4. PEGASYS [Concomitant]
     Indication: HEPATITIS C
     Dosage: WEEKLY
     Route: 058
     Dates: start: 20120302

REACTIONS (1)
  - Cerebral infarction [Not Recovered/Not Resolved]
